FAERS Safety Report 17136183 (Version 7)
Quarter: 2020Q1

REPORT INFORMATION
  Report Type: Report from Study
  Country: FR (occurrence: FR)
  Receive Date: 20191210
  Receipt Date: 20200318
  Transmission Date: 20200409
  Serious: Yes (Hospitalization)
  Sender: FDA-Public Use
  Company Number: FR-ROCHE-2486117

PATIENT
  Age: 40 Year
  Sex: Female
  Weight: 54 kg

DRUGS (26)
  1. POLARAMINE [Concomitant]
     Active Substance: DEXCHLORPHENIRAMINE MALEATE
     Route: 042
     Dates: start: 20190619, end: 20190619
  2. OFLOXACINE [Concomitant]
     Active Substance: OFLOXACIN
     Route: 048
     Dates: start: 20191015, end: 20191021
  3. METHYLPREDNISOLONE. [Concomitant]
     Active Substance: METHYLPREDNISOLONE
     Route: 042
     Dates: start: 20190103, end: 20190103
  4. METHYLPREDNISOLONE. [Concomitant]
     Active Substance: METHYLPREDNISOLONE
     Route: 042
     Dates: start: 20191203
  5. POLARAMINE [Concomitant]
     Active Substance: DEXCHLORPHENIRAMINE MALEATE
     Route: 042
     Dates: start: 20191203
  6. KETOPROFENE [KETOPROFEN] [Concomitant]
     Active Substance: KETOPROFEN
     Route: 048
     Dates: start: 20191112, end: 20191124
  7. PARACETAMOL [Concomitant]
     Active Substance: ACETAMINOPHEN
     Route: 048
     Dates: start: 20191019, end: 20191028
  8. METHYLPREDNISOLONE. [Concomitant]
     Active Substance: METHYLPREDNISOLONE
     Indication: PREMEDICATION
     Dosage: DATES OF THE TRETAMENT, 02/JUL/2018, 03/JAN/2019, 19/JUN/2019 AND 03/DEC/2019
     Route: 042
     Dates: start: 20180719, end: 20180719
  9. METHYLPREDNISOLONE. [Concomitant]
     Active Substance: METHYLPREDNISOLONE
     Route: 042
     Dates: start: 20190619, end: 20190619
  10. PERFALGAN [Concomitant]
     Active Substance: ACETAMINOPHEN
     Route: 042
     Dates: start: 20190619
  11. POLARAMINE [Concomitant]
     Active Substance: DEXCHLORPHENIRAMINE MALEATE
     Route: 042
     Dates: start: 20190103, end: 20190103
  12. XATRAL [Concomitant]
     Active Substance: ALFUZOSIN
     Route: 048
     Dates: start: 20190920
  13. PANTOPRAZOLE [Concomitant]
     Active Substance: PANTOPRAZOLE
     Route: 048
     Dates: start: 20191015
  14. FAMPYRA [Concomitant]
     Active Substance: DALFAMPRIDINE
     Route: 048
     Dates: start: 20170804
  15. PARACETAMOL [Concomitant]
     Active Substance: ACETAMINOPHEN
     Route: 048
     Dates: start: 20191015, end: 20191024
  16. PERFALGAN [Concomitant]
     Active Substance: ACETAMINOPHEN
     Route: 042
     Dates: start: 20191203
  17. POLARAMINE [Concomitant]
     Active Substance: DEXCHLORPHENIRAMINE MALEATE
     Route: 042
     Dates: start: 20180802, end: 20180802
  18. PERFALGAN [Concomitant]
     Active Substance: ACETAMINOPHEN
     Route: 042
     Dates: start: 20180719
  19. OCRELIZUMAB. [Suspect]
     Active Substance: OCRELIZUMAB
     Indication: PROGRESSIVE MULTIPLE SCLEROSIS
     Dosage: INFUSION AT AN INITIAL DOSE OF TWO 300-MG INFUSIONS SEPARATED BY 14 DAYS (ON DAYS 1 AND 15), AND THE
     Route: 042
     Dates: start: 20180719
  20. KETOPROFENE [KETOPROFEN] [Concomitant]
     Active Substance: KETOPROFEN
     Route: 048
     Dates: start: 20191015, end: 20191020
  21. CLARITHROMYCINE [Concomitant]
     Active Substance: CLARITHROMYCIN
     Route: 048
     Dates: start: 20180722, end: 20180726
  22. POLARAMINE [Concomitant]
     Active Substance: DEXCHLORPHENIRAMINE MALEATE
     Indication: PREMEDICATION
     Route: 042
     Dates: start: 20180719, end: 20180719
  23. OFLOXACINE [Concomitant]
     Active Substance: OFLOXACIN
     Route: 048
     Dates: start: 20191119
  24. METHYLPREDNISOLONE. [Concomitant]
     Active Substance: METHYLPREDNISOLONE
     Route: 042
     Dates: start: 20180802, end: 20180802
  25. PERFALGAN [Concomitant]
     Active Substance: ACETAMINOPHEN
     Route: 042
     Dates: start: 20180802
  26. PERFALGAN [Concomitant]
     Active Substance: ACETAMINOPHEN
     Route: 042
     Dates: start: 20190103

REACTIONS (1)
  - Lithiasis [Recovered/Resolved]

NARRATIVE: CASE EVENT DATE: 20191015
